FAERS Safety Report 20754200 (Version 2)
Quarter: 2024Q4

REPORT INFORMATION
  Report Type: Spontaneous
  Country: US (occurrence: US)
  Receive Date: 20220426
  Receipt Date: 20241206
  Transmission Date: 20250114
  Serious: No
  Sender: ROCHE
  Company Number: US-ROCHE-2903873

PATIENT
  Sex: Male

DRUGS (3)
  1. ESBRIET [Suspect]
     Active Substance: PIRFENIDONE
     Indication: Idiopathic pulmonary fibrosis
     Dosage: ONGOING: YES
     Route: 048
  2. BENICAR [Concomitant]
     Active Substance: OLMESARTAN MEDOXOMIL
  3. LIPITOR [Concomitant]
     Active Substance: ATORVASTATIN CALCIUM

REACTIONS (1)
  - Weight decreased [Unknown]
